FAERS Safety Report 5362305-X (Version None)
Quarter: 2007Q2

REPORT INFORMATION
  Report Type: 
  Country: None (occurrence: None)
  Receive Date: 20070619
  Receipt Date: 20070613
  Transmission Date: 20071010
  Serious: Yes (Death)
  Sender: FDA-Public Use
  Company Number: B0469247A

PATIENT
  Age: 7 Year
  Sex: Female
  Weight: 20 kg

DRUGS (3)
  1. FLOLAN [Suspect]
     Route: 065
     Dates: start: 20070216
  2. TRACLEER [Concomitant]
     Dosage: 62.5MG PER DAY
     Route: 048
  3. SILDENAFIL CITRATE [Concomitant]
     Dosage: 20MG FOUR TIMES PER DAY
     Route: 048

REACTIONS (2)
  - DEATH [None]
  - DISEASE PROGRESSION [None]
